FAERS Safety Report 4983602-3 (Version None)
Quarter: 2006Q2

REPORT INFORMATION
  Report Type: 
  Country: None (occurrence: None)
  Receive Date: 20060426
  Receipt Date: 20060109
  Transmission Date: 20061013
  Serious: Yes (Hospitalization)
  Sender: FDA-Public Use
  Company Number: DE-AVENTIS-200610066DE

PATIENT
  Age: 57 Year
  Sex: Male

DRUGS (2)
  1. EUGLUCON N [Suspect]
     Indication: DIABETES MELLITUS
     Route: 048
     Dates: start: 20000101
  2. EUGLUCON N [Suspect]
     Route: 048
     Dates: start: 20000101

REACTIONS (2)
  - BILE DUCT OBSTRUCTION [None]
  - JAUNDICE [None]
